FAERS Safety Report 18212459 (Version 1)
Quarter: 2020Q3

REPORT INFORMATION
  Report Type: Spontaneous
  Country: PL (occurrence: PL)
  Receive Date: 20200831
  Receipt Date: 20200831
  Transmission Date: 20201103
  Serious: Yes (Other)
  Sender: FDA-Public Use
  Company Number: PL-ACCORD-198047

PATIENT
  Age: 46 Year
  Sex: Female
  Weight: 84.3 kg

DRUGS (1)
  1. CAPECITABINE ACCORD [Suspect]
     Active Substance: CAPECITABINE
     Indication: BREAST CANCER
     Route: 048
     Dates: start: 20191025

REACTIONS (2)
  - Heart rate increased [Unknown]
  - Dyspnoea [Unknown]
